FAERS Safety Report 8531622-4 (Version None)
Quarter: 2012Q3

REPORT INFORMATION
  Report Type: 
  Country: None (occurrence: None)
  Receive Date: 20120723
  Receipt Date: 20120713
  Transmission Date: 20120928
  Serious: Yes (Death, Hospitalization)
  Sender: FDA-Public Use
  Company Number: US-BAXTER-2012BAX010637

PATIENT
  Sex: Female

DRUGS (2)
  1. DIANEAL [Suspect]
     Route: 033
     Dates: start: 20120531, end: 20120702
  2. DIANEAL [Suspect]
     Route: 033
     Dates: start: 20120531, end: 20120702

REACTIONS (8)
  - CARDIO-RESPIRATORY ARREST [None]
  - UNRESPONSIVE TO STIMULI [None]
  - ABDOMINAL DISTENSION [None]
  - DYSPNOEA [None]
  - BLOOD ALBUMIN DECREASED [None]
  - CARDIAC FAILURE [None]
  - FALL [None]
  - ANXIETY [None]
